FAERS Safety Report 22754889 (Version 2)
Quarter: 2024Q3

REPORT INFORMATION
  Report Type: Spontaneous
  Country: US (occurrence: US)
  Receive Date: 20230727
  Receipt Date: 20240905
  Transmission Date: 20241017
  Serious: No
  Sender: ULTRAGENYX PHARMACEUTICAL
  Company Number: US-ULTRAGENYX PHARMACEUTICAL INC.-US-UGNX-23-00368

PATIENT
  Sex: Female
  Weight: 9.705 kg

DRUGS (6)
  1. DOJOLVI [Suspect]
     Active Substance: TRIHEPTANOIN
     Indication: Very long-chain acyl-coenzyme A dehydrogenase deficiency
     Dosage: 4.2 MILLILITER
     Route: 048
  2. DOJOLVI [Suspect]
     Active Substance: TRIHEPTANOIN
     Dosage: 5 ML FIVE TIMES DAILY FOR SEVEN DAYS
     Route: 048
  3. DOJOLVI [Suspect]
     Active Substance: TRIHEPTANOIN
     Dosage: 5.4 ML FIVE TIMES DAILY
     Route: 048
  4. DOJOLVI [Suspect]
     Active Substance: TRIHEPTANOIN
     Dosage: 6 ML FIVE TIMES DAILY
     Route: 048
  5. DOJOLVI [Suspect]
     Active Substance: TRIHEPTANOIN
     Dosage: 7.5 ML FOUR TIMES DAILY
     Route: 048
  6. ENFAMIL D VI SOL [Concomitant]
     Indication: Product used for unknown indication
     Dosage: UNK

REACTIONS (3)
  - Malaise [Not Recovered/Not Resolved]
  - Pyrexia [Not Recovered/Not Resolved]
  - Diarrhoea [Unknown]
